FAERS Safety Report 5311833-1 (Version None)
Quarter: 2007Q2

REPORT INFORMATION
  Report Type: 
  Country: None (occurrence: None)
  Receive Date: 20070430
  Receipt Date: 20060912
  Transmission Date: 20071010
  Serious: No
  Sender: FDA-Public Use
  Company Number: 2005UW17287

PATIENT
  Age: 71 Year
  Sex: Female
  Weight: 43.1 kg

DRUGS (5)
  1. NEXIUM [Suspect]
     Indication: GASTROOESOPHAGEAL REFLUX DISEASE
     Route: 048
  2. NEXIUM [Suspect]
     Indication: APHONIA
     Route: 048
  3. NEXIUM [Suspect]
     Route: 048
     Dates: start: 20060301
  4. NEXIUM [Suspect]
     Route: 048
     Dates: start: 20060301
  5. MIA-CALCIUM [Concomitant]

REACTIONS (3)
  - DRUG INEFFECTIVE [None]
  - NAUSEA [None]
  - PALPITATIONS [None]
